FAERS Safety Report 8431242-6 (Version None)
Quarter: 2012Q2

REPORT INFORMATION
  Report Type: 
  Country: None (occurrence: None)
  Receive Date: 20120613
  Receipt Date: 20120530
  Transmission Date: 20120825
  Serious: Yes (Other)
  Sender: FDA-Public Use
  Company Number: BR-AMGEN-BRASP2012034940

PATIENT
  Age: 10 Year
  Sex: Female

DRUGS (1)
  1. ETANERCEPT [Suspect]
     Indication: JUVENILE ARTHRITIS
     Dosage: UNK
     Route: 058
     Dates: start: 20111101

REACTIONS (3)
  - DYSPNOEA [None]
  - COUGH [None]
  - PERTUSSIS [None]
